FAERS Safety Report 8467096 (Version 2)
Quarter: 2013Q2

REPORT INFORMATION
  Report Type: Spontaneous
  Country: CH (occurrence: CH)
  Receive Date: 20120320
  Receipt Date: 20130604
  Transmission Date: 20140414
  Serious: Yes (Other)
  Sender: FDA-Public Use
  Company Number: CH-ELI_LILLY_AND_COMPANY-CH201203003848

PATIENT
  Age: 34 Year
  Sex: Female

DRUGS (8)
  1. CYMBALTA [Suspect]
     Indication: DEPRESSION
     Dosage: 60 MG, QD
     Route: 048
  2. IMUREK [Concomitant]
     Indication: MYOTONIA
     Dosage: 125 MG, QD
     Dates: end: 20120118
  3. CALCIMAGON D3 [Concomitant]
     Dosage: 500 MG, QD
     Dates: end: 20120118
  4. OMEPRAZOLE [Concomitant]
     Dosage: 20 MG, UNK
  5. GABAPENTINE [Concomitant]
     Indication: MYOTONIA
     Dosage: 3200 MG, QD
  6. PHENYTOIN [Concomitant]
     Indication: MYOTONIA
     Dosage: 350 MG, QD
  7. PREDNISONE [Concomitant]
     Indication: MYOTONIA
     Dosage: 5 MG, QD
  8. PREDNISONE [Concomitant]
     Dosage: 10 MG, QD

REACTIONS (1)
  - Exposure during pregnancy [Not Recovered/Not Resolved]
